FAERS Safety Report 7984371-5 (Version None)
Quarter: 2011Q4

REPORT INFORMATION
  Report Type: 
  Country: None (occurrence: None)
  Receive Date: 20111216
  Receipt Date: 20111208
  Transmission Date: 20120403
  Serious: Yes (Hospitalization)
  Sender: FDA-Public Use
  Company Number: US-B.I. PHARMACEUTICALS,INC./RIDGEFIELD-2011-BP-27694BP

PATIENT
  Sex: Female

DRUGS (10)
  1. PRADAXA [Suspect]
     Indication: ATRIAL FIBRILLATION
     Dosage: 300 MG
     Route: 048
     Dates: start: 20101101, end: 20111129
  2. URIBEL [Concomitant]
     Indication: URINARY TRACT INFECTION
     Route: 048
  3. RANITIDINE [Concomitant]
     Indication: GASTROOESOPHAGEAL REFLUX DISEASE
     Dosage: 300 MG
     Route: 048
     Dates: start: 20101201
  4. LANTUS [Concomitant]
     Indication: DIABETES MELLITUS
     Dosage: 4 U
     Route: 058
  5. METOPROLOL TARTRATE [Concomitant]
     Indication: HYPERTENSION
     Dosage: 100 MG
     Route: 048
  6. PRIMIDONE [Concomitant]
     Dosage: 100 MG
     Route: 048
  7. NOVOLOG [Concomitant]
     Indication: DIABETES MELLITUS
     Dosage: 10 U
     Route: 058
  8. VALACYCLOVIR [Concomitant]
     Indication: MENSTRUAL DISORDER
     Dosage: 1 G
     Route: 048
  9. SINGULAIR [Concomitant]
     Indication: DYSPNOEA
     Dosage: 10 MG
     Route: 048
     Dates: start: 20070101
  10. LIPITOR [Concomitant]
     Indication: HYPERCHOLESTEROLAEMIA
     Dosage: 40 MG
     Route: 048

REACTIONS (4)
  - OEDEMA PERIPHERAL [None]
  - WEIGHT DECREASED [None]
  - THROMBOSIS [None]
  - MEDICAL DEVICE COMPLICATION [None]
